FAERS Safety Report 9221866 (Version 1)
Quarter: 2013Q2

REPORT INFORMATION
  Report Type: Spontaneous
  Country: US (occurrence: None)
  Receive Date: 20130410
  Receipt Date: 20130410
  Transmission Date: 20140414
  Serious: Yes (Death)
  Sender: FDA-Public Use
  Company Number: None

PATIENT
  Age: 91 Year
  Sex: Female
  Weight: 65.4 kg

DRUGS (1)
  1. WARFARIN 2.5 MG [Suspect]
     Indication: ATRIAL FIBRILLATION
     Dosage: 2.5 MG DAILY PO?YEARS
     Route: 048

REACTIONS (4)
  - Fall [None]
  - Head injury [None]
  - Subdural haematoma [None]
  - Haemorrhage intracranial [None]
